FAERS Safety Report 9854440 (Version 1)
Quarter: 2014Q1

REPORT INFORMATION
  Report Type: Spontaneous
  Country: US (occurrence: US)
  Receive Date: 20140130
  Receipt Date: 20140130
  Transmission Date: 20141002
  Serious: No
  Sender: FDA-Public Use
  Company Number: US-BIOGENIDEC-2014BI009123

PATIENT
  Sex: Female

DRUGS (12)
  1. TYSABRI [Suspect]
     Indication: MULTIPLE SCLEROSIS
     Route: 042
  2. TECFIDERA [Concomitant]
     Indication: MULTIPLE SCLEROSIS
     Dates: start: 20130830, end: 20130905
  3. TECFIDERA [Concomitant]
     Indication: MULTIPLE SCLEROSIS
     Dates: start: 20130906
  4. PAROXETINE [Concomitant]
  5. PANTOPRAZOLE [Concomitant]
  6. MIRTAZAPINE [Concomitant]
  7. OMEGA 3 [Concomitant]
  8. ATIVAN [Concomitant]
  9. VICODIN [Concomitant]
  10. LYRICA [Concomitant]
  11. ALLEGRA [Concomitant]
  12. MIDOL [Concomitant]

REACTIONS (1)
  - Hypersensitivity [Unknown]
